FAERS Safety Report 5338401-X (Version None)
Quarter: 2007Q2

REPORT INFORMATION
  Report Type: 
  Country: None (occurrence: None)
  Receive Date: 20070530
  Receipt Date: 20070524
  Transmission Date: 20071010
  Serious: Yes (Hospitalization)
  Sender: FDA-Public Use
  Company Number: US-ELI_LILLY_AND_COMPANY-US200705006329

PATIENT
  Age: 56 Year
  Sex: Male
  Weight: 104 kg

DRUGS (5)
  1. BYETTA [Suspect]
     Indication: DIABETES MELLITUS NON-INSULIN-DEPENDENT
     Dosage: 5 UG, 2/D
     Route: 058
     Dates: start: 20060101, end: 20060101
  2. BYETTA [Suspect]
     Dosage: 10 UG, 2/D
     Route: 058
     Dates: start: 20060101
  3. GLUCOTROL [Concomitant]
     Indication: DIABETES MELLITUS
  4. METHADONE HCL [Concomitant]
     Indication: NEURALGIA
  5. DEMEROL [Concomitant]
     Indication: NEURALGIA

REACTIONS (8)
  - ANOREXIA [None]
  - FALL [None]
  - INCISION SITE INFECTION [None]
  - INTERVERTEBRAL DISC DEGENERATION [None]
  - LOSS OF CONSCIOUSNESS [None]
  - SPINAL FRACTURE [None]
  - WEIGHT DECREASED [None]
  - WEIGHT INCREASED [None]
